FAERS Safety Report 5831195-0 (Version None)
Quarter: 2008Q3

REPORT INFORMATION
  Report Type: 
  Country: None (occurrence: None)
  Receive Date: 20080801
  Receipt Date: 20080523
  Transmission Date: 20090109
  Serious: No
  Sender: FDA-Public Use
  Company Number: US-BRISTOL-MYERS SQUIBB COMPANY-14203319

PATIENT
  Age: 75 Year
  Sex: Female
  Weight: 68 kg

DRUGS (7)
  1. COUMADIN [Suspect]
     Indication: TRANSIENT ISCHAEMIC ATTACK
     Dosage: DOSAGE NOW= 2MG FOURDAYS IN A WEEK ALTERNATING WITH 3MG THREE DAYS.
     Dates: start: 19970101
  2. COUMADIN [Suspect]
     Indication: CEREBROVASCULAR ACCIDENT
     Dosage: DOSAGE NOW= 2MG FOURDAYS IN A WEEK ALTERNATING WITH 3MG THREE DAYS.
     Dates: start: 19970101
  3. SIMVASTATIN [Concomitant]
  4. PLAVIX [Concomitant]
  5. VERAPAMIL [Concomitant]
  6. PREVACID [Concomitant]
  7. ALLEGRA [Concomitant]

REACTIONS (1)
  - INTERNATIONAL NORMALISED RATIO DECREASED [None]
